FAERS Safety Report 16564302 (Version 7)
Quarter: 2025Q2

REPORT INFORMATION
  Report Type: Report from Study
  Country: US (occurrence: US)
  Receive Date: 20190712
  Receipt Date: 20250606
  Transmission Date: 20250716
  Serious: Yes (Life-Threatening, Hospitalization)
  Sender: TAKEDA
  Company Number: US-SHIRE-US201922503

PATIENT
  Age: 48 Year
  Sex: Female
  Weight: 75 kg

DRUGS (9)
  1. PARATHYROID HORMONE [Suspect]
     Active Substance: PARATHYROID HORMONE
     Indication: Hypoparathyroidism
  2. PARATHYROID HORMONE [Suspect]
     Active Substance: PARATHYROID HORMONE
     Dosage: 25 MICROGRAM, QD
     Dates: start: 20190115
  3. PARATHYROID HORMONE [Suspect]
     Active Substance: PARATHYROID HORMONE
     Dosage: 50 MICROGRAM, QD
  4. CALCIUM [Concomitant]
     Active Substance: CALCIUM
     Indication: Product used for unknown indication
  5. CALCIUM CARBONATE [Concomitant]
     Active Substance: CALCIUM CARBONATE
     Indication: Product used for unknown indication
  6. ROCALTROL [Concomitant]
     Active Substance: CALCITRIOL
     Indication: Product used for unknown indication
  7. CHLORTHALIDONE [Concomitant]
     Active Substance: CHLORTHALIDONE
     Indication: Product used for unknown indication
  8. ZOMETA [Concomitant]
     Active Substance: ZOLEDRONIC ACID
     Indication: Product used for unknown indication
  9. POTASSIUM CHLORIDE [Concomitant]
     Active Substance: POTASSIUM CHLORIDE
     Indication: Product used for unknown indication

REACTIONS (7)
  - Hypercalcaemia [Recovered/Resolved]
  - Blood calcium decreased [Unknown]
  - Vomiting [Recovered/Resolved]
  - Nausea [Recovered/Resolved]
  - Influenza like illness [Unknown]
  - Dehydration [Unknown]
  - Recalled product [Unknown]

NARRATIVE: CASE EVENT DATE: 20190705
